FAERS Safety Report 21694593 (Version 2)
Quarter: 2023Q1

REPORT INFORMATION
  Report Type: Spontaneous
  Country: US (occurrence: US)
  Receive Date: 20221207
  Receipt Date: 20230104
  Transmission Date: 20230418
  Serious: Yes (Other)
  Sender: FDA-Public Use
  Company Number: US-MYLANLABS-2022M1125315

PATIENT
  Age: 47 Year
  Sex: Male

DRUGS (8)
  1. GABAPENTIN [Suspect]
     Active Substance: GABAPENTIN
     Indication: Neuropathy peripheral
     Dosage: UNK
     Route: 065
     Dates: start: 202105, end: 20220512
  2. GABAPENTIN [Suspect]
     Active Substance: GABAPENTIN
     Indication: Pain
  3. GABAPENTIN [Suspect]
     Active Substance: GABAPENTIN
     Indication: Anxiety
  4. LISINOPRIL [Concomitant]
     Active Substance: LISINOPRIL
     Indication: Hypertension
     Dosage: UNK
     Route: 048
     Dates: start: 20161027
  5. OMEPRAZOLE [Concomitant]
     Active Substance: OMEPRAZOLE
     Indication: Gastrooesophageal reflux disease
     Dosage: UNK
     Route: 048
     Dates: start: 20111221
  6. BUPROPION [Concomitant]
     Active Substance: BUPROPION
     Indication: Hypertension
     Dosage: UNK
     Route: 048
     Dates: start: 20090508
  7. BUPROPION [Concomitant]
     Active Substance: BUPROPION
     Indication: Depression
  8. BACTRIM [Concomitant]
     Active Substance: SULFAMETHOXAZOLE\TRIMETHOPRIM
     Dosage: UNK
     Route: 065

REACTIONS (57)
  - Aortic valve incompetence [Unknown]
  - Pericarditis [Unknown]
  - Myocarditis [Unknown]
  - Palpitations [Recovering/Resolving]
  - Anxiety [Unknown]
  - Chest pain [Unknown]
  - Paraesthesia [Unknown]
  - Pain in extremity [Unknown]
  - Hypoaesthesia [Unknown]
  - Hypoaesthesia oral [Unknown]
  - Paraesthesia oral [Unknown]
  - Muscle spasms [Unknown]
  - Blood pressure increased [Unknown]
  - Decreased appetite [Unknown]
  - Nasopharyngitis [Unknown]
  - Oropharyngeal pain [Unknown]
  - Toothache [Unknown]
  - Pain in jaw [Unknown]
  - Chest discomfort [Unknown]
  - Pharyngeal swelling [Unknown]
  - Burning sensation [Unknown]
  - Nail discolouration [Unknown]
  - Weight decreased [Unknown]
  - Panic attack [Unknown]
  - Groin pain [Unknown]
  - Abdominal distension [Unknown]
  - Injection site pain [Unknown]
  - Contusion [Unknown]
  - Intervertebral disc degeneration [Unknown]
  - Cholelithiasis [Unknown]
  - Sneezing [Unknown]
  - Urine abnormality [Unknown]
  - Sinus disorder [Unknown]
  - Hernia [Unknown]
  - Hiatus hernia [Unknown]
  - Arthralgia [Unknown]
  - Back pain [Unknown]
  - Neck pain [Unknown]
  - Musculoskeletal chest pain [Unknown]
  - Insomnia [Unknown]
  - Headache [Unknown]
  - Fatigue [Unknown]
  - Tremor [Unknown]
  - Dyspnoea [Unknown]
  - Neuralgia [Unknown]
  - Pain [Unknown]
  - Nausea [Unknown]
  - Nervousness [Unknown]
  - Abdominal pain [Unknown]
  - Diarrhoea [Unknown]
  - Tinnitus [Unknown]
  - Dyspepsia [Unknown]
  - Dry mouth [Unknown]
  - Dizziness [Unknown]
  - Vertigo [Unknown]
  - Malaise [Unknown]
  - Pruritus [Unknown]

NARRATIVE: CASE EVENT DATE: 20210501
